FAERS Safety Report 8393854-8 (Version None)
Quarter: 2012Q2

REPORT INFORMATION
  Report Type: 
  Country: None (occurrence: None)
  Receive Date: 20120530
  Receipt Date: 20120524
  Transmission Date: 20120825
  Serious: No
  Sender: FDA-Public Use
  Company Number: US-PFIZER INC-2012126566

PATIENT
  Sex: Male
  Weight: 84 kg

DRUGS (5)
  1. NEURONTIN [Suspect]
     Indication: NERVE COMPRESSION
     Dosage: 600 MG, 4X/DAY
     Route: 048
     Dates: start: 20080101
  2. PROTONIX [Concomitant]
     Dosage: UNK
  3. HYDROCODONE [Concomitant]
     Indication: PAIN
     Dosage: 10 MG, UNK
  4. NEURONTIN [Suspect]
     Indication: SCIATICA
  5. MULTI-VITAMINS [Concomitant]
     Dosage: UNK

REACTIONS (6)
  - HYPOAESTHESIA [None]
  - GAIT DISTURBANCE [None]
  - DYSSTASIA [None]
  - MUSCULAR WEAKNESS [None]
  - BURNING SENSATION [None]
  - PARAESTHESIA [None]
